FAERS Safety Report 5619260-4 (Version None)
Quarter: 2008Q1

REPORT INFORMATION
  Report Type: 
  Country: None (occurrence: None)
  Receive Date: 20080205
  Receipt Date: 20080128
  Transmission Date: 20080703
  Serious: Yes (Hospitalization)
  Sender: FDA-Public Use
  Company Number: 082-C5013-08011516

PATIENT
  Age: 62 Year
  Sex: Female

DRUGS (3)
  1. CC-5013 (LENALIDOMIDE) (CAPSULES) [Suspect]
     Indication: MULTIPLE MYELOMA
     Dosage: 25 MG, DAILY, ORAL
     Route: 048
     Dates: start: 20071213, end: 20080127
  2. MELPHALAN (MELPHALAN) [Suspect]
     Indication: MULTIPLE MYELOMA
     Dates: start: 20071213, end: 20080127
  3. PREDNISONE TAB [Suspect]
     Indication: MULTIPLE MYELOMA
     Dates: start: 20071213, end: 20080128

REACTIONS (14)
  - ANAEMIA [None]
  - ARTHRALGIA [None]
  - COMPRESSION FRACTURE [None]
  - FOLATE DEFICIENCY [None]
  - HUMERUS FRACTURE [None]
  - HYPERCALCAEMIA [None]
  - LEUKOPENIA [None]
  - LUMBAR VERTEBRAL FRACTURE [None]
  - OSTEOPENIA [None]
  - PAIN [None]
  - PROTEIN TOTAL DECREASED [None]
  - ROTATOR CUFF SYNDROME [None]
  - THORACIC VERTEBRAL FRACTURE [None]
  - THROMBOCYTOPENIA [None]
